FAERS Safety Report 14734132 (Version 1)
Quarter: 2018Q2

REPORT INFORMATION
  Report Type: Spontaneous
  Country: US (occurrence: US)
  Receive Date: 20180409
  Receipt Date: 20180409
  Transmission Date: 20180711
  Serious: No
  Sender: FDA-Public Use
  Company Number: US-TAKEDA-2018MPI003382

PATIENT

DRUGS (3)
  1. DEXAMETHASONE. [Suspect]
     Active Substance: DEXAMETHASONE
     Indication: HYPERGAMMAGLOBULINAEMIA BENIGN MONOCLONAL
     Dosage: UNK
     Route: 065
     Dates: start: 201605
  2. NINLARO [Suspect]
     Active Substance: IXAZOMIB CITRATE
     Indication: HYPERGAMMAGLOBULINAEMIA BENIGN MONOCLONAL
     Dosage: UNK
     Route: 065
  3. REVLIMID [Suspect]
     Active Substance: LENALIDOMIDE
     Indication: HYPERGAMMAGLOBULINAEMIA BENIGN MONOCLONAL
     Dosage: UNK
     Route: 065
     Dates: start: 201605

REACTIONS (6)
  - Nausea [Unknown]
  - Palmar-plantar erythrodysaesthesia syndrome [Unknown]
  - Off label use [Unknown]
  - Platelet count decreased [Unknown]
  - Hypoaesthesia [Unknown]
  - Vomiting [Unknown]
